FAERS Safety Report 16985898 (Version 1)
Quarter: 2019Q4

REPORT INFORMATION
  Report Type: Spontaneous
  Country: US (occurrence: US)
  Receive Date: 20191031
  Receipt Date: 20191031
  Transmission Date: 20200122
  Serious: Yes (Other)
  Sender: FDA-Public Use
  Company Number: None

PATIENT
  Age: 62 Year
  Sex: Female
  Weight: 51.3 kg

DRUGS (1)
  1. SUTENT [Suspect]
     Active Substance: SUNITINIB MALATE
     Indication: RENAL CANCER
     Dosage: ?          OTHER FREQUENCY:DAILY X 2 WEEKS;?
     Route: 048
     Dates: start: 20190826, end: 20191031

REACTIONS (2)
  - Therapy cessation [None]
  - Hypertension [None]

NARRATIVE: CASE EVENT DATE: 20191031
